FAERS Safety Report 25766686 (Version 1)
Quarter: 2025Q3

REPORT INFORMATION
  Report Type: Spontaneous
  Country: RU (occurrence: RU)
  Receive Date: 20250905
  Receipt Date: 20250905
  Transmission Date: 20251021
  Serious: Yes (Other)
  Sender: MELINTA THERAPEUTICS
  Company Number: RU-AstraZeneca-CH-00935960A

PATIENT

DRUGS (1)
  1. METOPROLOL SUCCINATE [Suspect]
     Active Substance: METOPROLOL SUCCINATE
     Indication: Tachycardia
     Dosage: 50 MILLIGRAM, QD
     Route: 048

REACTIONS (1)
  - Urticaria [Recovered/Resolved]
